FAERS Safety Report 13643210 (Version 1)
Quarter: 2017Q2

REPORT INFORMATION
  Report Type: Spontaneous
  Country: US (occurrence: US)
  Receive Date: 20170612
  Receipt Date: 20170612
  Transmission Date: 20170830
  Serious: Yes (Other)
  Sender: FDA-Public Use
  Company Number: US-ALKERMES INC.-ALK-2017-002309

PATIENT
  Sex: Female

DRUGS (1)
  1. VIVITROL [Suspect]
     Active Substance: NALTREXONE
     Indication: DRUG USE DISORDER
     Dosage: 380 MG, QMO
     Route: 030

REACTIONS (9)
  - Drug use disorder [Unknown]
  - Accident [Unknown]
  - Therapeutic response shortened [Not Recovered/Not Resolved]
  - Surgery [Unknown]
  - Tremor [Not Recovered/Not Resolved]
  - Impaired work ability [Not Recovered/Not Resolved]
  - Limb injury [Not Recovered/Not Resolved]
  - Abnormal behaviour [Not Recovered/Not Resolved]
  - Irritability [Not Recovered/Not Resolved]
